FAERS Safety Report 5871164-8 (Version None)
Quarter: 2008Q3

REPORT INFORMATION
  Report Type: 
  Country: None (occurrence: None)
  Receive Date: 20080902
  Receipt Date: 20080819
  Transmission Date: 20090109
  Serious: Yes (Hospitalization)
  Sender: FDA-Public Use
  Company Number: 2008US002088

PATIENT
  Age: 68 Year
  Sex: Male

DRUGS (23)
  1. TACROLIMUS [Suspect]
     Indication: RENAL TRANSPLANT
     Dosage: 0.75 MG, UID/QD,ORAL
     Route: 048
     Dates: start: 20040310
  2. CELLCEPT [Suspect]
     Indication: RENAL TRANSPLANT
     Dosage: 500 MG, BID, ORAL; 1000 MG, TID
     Route: 048
     Dates: start: 20040310
  3. PREDNISOLONE ACETATE [Concomitant]
  4. CARDURA [Concomitant]
  5. COREG [Concomitant]
  6. METOPROLOL SUCCINATE [Concomitant]
  7. MINOXIDIL [Concomitant]
  8. NORVASC [Concomitant]
  9. PRAVACHOL [Concomitant]
  10. TORSEMIDE [Concomitant]
  11. DEPAKOTE [Concomitant]
  12. LUNESTA [Concomitant]
  13. ARANESP [Concomitant]
  14. DARVOCET [Concomitant]
  15. ASPIRIN [Concomitant]
  16. ZOFRAN [Concomitant]
  17. FLONASE [Concomitant]
  18. ALLOPURINOL [Concomitant]
  19. NEXIUM (ESOMEPRAZOLE SODIUM) [Concomitant]
  20. FOLIC (FOLIC ACID) [Concomitant]
  21. ROCALTROL [Concomitant]
  22. COLACE (DOCUSATE SODIUM) [Concomitant]
  23. LATURUS (LACTULOSE) [Concomitant]

REACTIONS (9)
  - CARDIAC FAILURE [None]
  - CONDITION AGGRAVATED [None]
  - DEAFNESS [None]
  - DYSURIA [None]
  - EFFUSION [None]
  - HAEMATURIA [None]
  - NEPHROPATHY TOXIC [None]
  - POLLAKIURIA [None]
  - PULMONARY HYPERTENSION [None]
